FAERS Safety Report 9162544 (Version 2)
Quarter: 2013Q1

REPORT INFORMATION
  Report Type: Spontaneous
  Country: US (occurrence: None)
  Receive Date: 20130212
  Receipt Date: 20130228
  Transmission Date: 20140127
  Serious: Yes (Hospitalization)
  Sender: FDA-Public Use
  Company Number: 2013PROUSA02519

PATIENT
  Age: 74 Year
  Sex: Male
  Weight: 78.9 kg

DRUGS (5)
  1. PROVENGE (SIPULEUCEL-T) SUSPENSION, 250ML [Suspect]
     Indication: PROSTATE CANCER METASTATIC
     Dosage: 250 ML, SINGLE, INTRAVENOUS
     Route: 042
     Dates: start: 20130125, end: 20130125
  2. ZOMETA (ZOLEDRONIC ACID) [Concomitant]
  3. LUPRON (LEUPRORELIN ACETATE) [Concomitant]
  4. PAXIL (PAROXETINE HYDROCHLORIDE) [Concomitant]
  5. LORTAB (HYDROCODONE BITARTRATE, PARACETAMOL) [Concomitant]

REACTIONS (5)
  - Bacteraemia [None]
  - Cytokine release syndrome [None]
  - Staphylococcal bacteraemia [None]
  - Product contamination microbial [None]
  - Poor quality drug administered [None]
